FAERS Safety Report 8127655-2 (Version None)
Quarter: 2012Q1

REPORT INFORMATION
  Report Type: 
  Country: None (occurrence: None)
  Receive Date: 20120210
  Receipt Date: 20120201
  Transmission Date: 20120608
  Serious: Yes (Other)
  Sender: FDA-Public Use
  Company Number: JP-ASTELLAS-2012US001569

PATIENT
  Sex: Male
  Weight: 67 kg

DRUGS (5)
  1. CARBOPLATIN [Suspect]
     Indication: LUNG ADENOCARCINOMA
     Dosage: 595 MG, Q3W
     Route: 041
     Dates: start: 20110810
  2. AVASTIN [Suspect]
     Indication: LUNG ADENOCARCINOMA
     Dosage: 15 MG/KG, Q3W
     Route: 041
     Dates: start: 20110810
  3. TARCEVA [Suspect]
     Indication: LUNG ADENOCARCINOMA
     Dosage: 150 MG, UID/QD
     Route: 048
     Dates: start: 20110615, end: 20110729
  4. PACLITAXEL [Suspect]
     Indication: LUNG ADENOCARCINOMA
     Dosage: 346 MG, Q3W
     Route: 041
     Dates: start: 20110810
  5. AVASTIN [Suspect]
     Dosage: 15 MG/KG, Q3W
     Route: 041
     Dates: start: 20110831, end: 20111216

REACTIONS (2)
  - WHITE BLOOD CELL COUNT DECREASED [None]
  - NEUTROPHIL COUNT DECREASED [None]
